FAERS Safety Report 7235202-2 (Version None)
Quarter: 2011Q1

REPORT INFORMATION
  Report Type: 
  Country: None (occurrence: None)
  Receive Date: 20110120
  Receipt Date: 20110110
  Transmission Date: 20110831
  Serious: Yes (Hospitalization, Other)
  Sender: FDA-Public Use
  Company Number: IT-BRISTOL-MYERS SQUIBB COMPANY-15491335

PATIENT
  Age: 65 Year
  Sex: Male

DRUGS (3)
  1. APIDRA [Suspect]
     Indication: INSULIN-REQUIRING TYPE 2 DIABETES MELLITUS
     Dosage: APIDRA 100 U/ML
     Route: 058
     Dates: start: 20051106, end: 20101106
  2. GLUCOPHAGE [Suspect]
     Indication: INSULIN-REQUIRING TYPE 2 DIABETES MELLITUS
     Dosage: GLUCOPHAGE 1000MG; STOPPED ON 06NOV2010; UNK DATE-REINTRODUCED
     Route: 048
     Dates: start: 20051106
  3. LANTUS [Suspect]
     Indication: INSULIN-REQUIRING TYPE 2 DIABETES MELLITUS
     Dosage: LANTUS 100 IU/ML
     Route: 058
     Dates: start: 20051106, end: 20101106

REACTIONS (3)
  - SYNCOPE [None]
  - HYPOGLYCAEMIC COMA [None]
  - HYPOGLYCAEMIA [None]
